FAERS Safety Report 26211172 (Version 1)
Quarter: 2025Q4

REPORT INFORMATION
  Report Type: Spontaneous
  Country: US (occurrence: US)
  Receive Date: 20251230
  Receipt Date: 20251230
  Transmission Date: 20260117
  Serious: Yes (Hospitalization)
  Sender: ABBVIE
  Company Number: US-ABBVIE-6609088

PATIENT
  Age: 66 Year
  Sex: Female

DRUGS (13)
  1. SYNTHROID [Suspect]
     Active Substance: LEVOTHYROXINE SODIUM
     Indication: Product used for unknown indication
     Route: 048
  2. OXYCODONE [Suspect]
     Active Substance: OXYCODONE
     Indication: Product used for unknown indication
     Route: 065
  3. OXYCONTIN [Suspect]
     Active Substance: OXYCODONE HYDROCHLORIDE
     Indication: Product used for unknown indication
     Route: 065
  4. EFFIENT [Suspect]
     Active Substance: PRASUGREL HYDROCHLORIDE
     Indication: Product used for unknown indication
     Route: 065
  5. PRASUGREL [Suspect]
     Active Substance: PRASUGREL
     Indication: Product used for unknown indication
     Route: 065
  6. MORPHINE [Suspect]
     Active Substance: MORPHINE
     Indication: Product used for unknown indication
     Route: 065
  7. GABAPENTIN [Suspect]
     Active Substance: GABAPENTIN
     Indication: Product used for unknown indication
     Route: 065
  8. ATENOLOL [Suspect]
     Active Substance: ATENOLOL
     Indication: Product used for unknown indication
     Route: 065
  9. MIEBO [Suspect]
     Active Substance: PERFLUOROHEXYLOCTANE
     Indication: Product used for unknown indication
     Route: 065
  10. TRYPTYR [Suspect]
     Active Substance: ACOLTREMON
     Indication: Product used for unknown indication
     Dosage: DRUG STRENGTH:  0%, INSTILL 1 DROP INTO BOTH EYES TWICE A DAY
     Route: 047
     Dates: start: 20251126, end: 20251204
  11. MS CONTIN [Suspect]
     Active Substance: MORPHINE SULFATE
     Indication: Product used for unknown indication
     Route: 065
  12. NEURONTIN [Suspect]
     Active Substance: GABAPENTIN
     Indication: Product used for unknown indication
     Route: 065
  13. TENORMIN [Suspect]
     Active Substance: ATENOLOL
     Indication: Product used for unknown indication
     Route: 065

REACTIONS (6)
  - Lacrimation increased [Recovered/Resolved]
  - Eyelid margin crusting [Recovered/Resolved]
  - Eye haemorrhage [Recovered/Resolved]
  - Eye injury [Recovered/Resolved]
  - Vision blurred [Recovered/Resolved]
  - Impaired driving ability [Recovered/Resolved]

NARRATIVE: CASE EVENT DATE: 20250101
